FAERS Safety Report 7473075-3 (Version None)
Quarter: 2011Q2

REPORT INFORMATION
  Report Type: 
  Country: None (occurrence: None)
  Receive Date: 20110511
  Receipt Date: 20110428
  Transmission Date: 20111010
  Serious: Yes (Hospitalization, Other)
  Sender: FDA-Public Use
  Company Number: CA-ELI_LILLY_AND_COMPANY-CA201104007825

PATIENT
  Sex: Female

DRUGS (19)
  1. SEROQUEL [Concomitant]
  2. ESCITALOPRAM [Concomitant]
  3. KYOLIC [Concomitant]
  4. ZYPREXA [Suspect]
     Dosage: 10 MG, QD
  5. LITHIUM [Concomitant]
  6. EPIVAL [Concomitant]
  7. SERTRALINE HYDROCHLORIDE [Concomitant]
  8. EFFEXOR [Concomitant]
  9. ZOPICLONE [Concomitant]
  10. ASPIRIN [Concomitant]
  11. MANERIX [Concomitant]
  12. WELLBUTRIN [Concomitant]
  13. PREMPLUS [Concomitant]
  14. ZYPREXA [Suspect]
     Dosage: 2.5 MG, QD
  15. VALPROIC ACID [Concomitant]
  16. ATIVAN [Concomitant]
  17. ZYPREXA [Suspect]
     Indication: BIPOLAR DISORDER
     Dosage: 5.0 MG, QD
  18. DOMPERIDONE [Concomitant]
  19. RISPERDAL [Concomitant]

REACTIONS (13)
  - RENAL FAILURE [None]
  - HYPERCHOLESTEROLAEMIA [None]
  - ALANINE AMINOTRANSFERASE INCREASED [None]
  - OEDEMA PERIPHERAL [None]
  - HYPERGLYCAEMIA [None]
  - DYSFUNCTIONAL UTERINE BLEEDING [None]
  - HYPERTENSIVE NEPHROPATHY [None]
  - DIABETES MELLITUS [None]
  - BLOOD TRIGLYCERIDES INCREASED [None]
  - ANAEMIA [None]
  - DIABETIC NEPHROPATHY [None]
  - HYPERTENSION [None]
  - WEIGHT INCREASED [None]
